FAERS Safety Report 11468598 (Version 1)
Quarter: 2015Q3

REPORT INFORMATION
  Report Type: Spontaneous
  Country: US (occurrence: None)
  Receive Date: 20150904
  Receipt Date: 20150904
  Transmission Date: 20151125
  Serious: Yes (Hospitalization, Disabling, Other)
  Sender: FDA-Public Use
  Company Number: None

PATIENT
  Age: 19 Year
  Sex: Female
  Weight: 94.35 kg

DRUGS (3)
  1. LABETALOL 100 MG [Suspect]
     Active Substance: LABETALOL HYDROCHLORIDE
     Indication: HYPERTENSION
     Dosage: TAKEN BY MOUTH
     Dates: start: 20150824, end: 20150831
  2. SINGULAIR [Concomitant]
     Active Substance: MONTELUKAST SODIUM
  3. TYLENOL [Concomitant]
     Active Substance: ACETAMINOPHEN

REACTIONS (29)
  - Somnolence [None]
  - Chromaturia [None]
  - Peripheral swelling [None]
  - Visual field defect [None]
  - Hyperhidrosis [None]
  - Cough [None]
  - Pain [None]
  - Discomfort [None]
  - Condition aggravated [None]
  - Chills [None]
  - Oropharyngeal pain [None]
  - Renal pain [None]
  - Nausea [None]
  - Hypotension [None]
  - Hormone level abnormal [None]
  - Haematochezia [None]
  - Adverse drug reaction [None]
  - Menstruation delayed [None]
  - Asthenia [None]
  - Rash [None]
  - Syncope [None]
  - Pyrexia [None]
  - Dysphonia [None]
  - Mood swings [None]
  - Heart rate irregular [None]
  - Dizziness [None]
  - Chest discomfort [None]
  - Myalgia [None]
  - Contusion [None]

NARRATIVE: CASE EVENT DATE: 20150824
